FAERS Safety Report 15197192 (Version 1)
Quarter: 2018Q3

REPORT INFORMATION
  Report Type: Spontaneous
  Country: GB (occurrence: GB)
  Receive Date: 20180725
  Receipt Date: 20180725
  Transmission Date: 20181010
  Serious: Yes (Other)
  Sender: FDA-Public Use
  Company Number: GB-MYLANLABS-2018M1053793

PATIENT
  Age: 77 Year
  Sex: Female

DRUGS (2)
  1. TIMOLOL. [Concomitant]
     Active Substance: TIMOLOL
     Indication: INTRAOCULAR PRESSURE TEST
     Dosage: UNK, 2X/DAY
  2. LATANOPROST. [Suspect]
     Active Substance: LATANOPROST
     Indication: INTRAOCULAR PRESSURE TEST
     Dosage: UNK, 1X/DAY (ONCE AT NIGHT)

REACTIONS (3)
  - Hypotrichosis [Not Recovered/Not Resolved]
  - Iridocyclitis [Recovered/Resolved]
  - Achromotrichia acquired [Recovering/Resolving]
